FAERS Safety Report 11228433 (Version 2)
Quarter: 2015Q3

REPORT INFORMATION
  Report Type: Spontaneous
  Country: IL (occurrence: IL)
  Receive Date: 20150630
  Receipt Date: 20150713
  Transmission Date: 20151125
  Serious: Yes (Hospitalization, Other)
  Sender: FDA-Public Use
  Company Number: IL-BAXTER-2015BAX034364

PATIENT
  Sex: Male

DRUGS (13)
  1. SYNTHAMIN [Suspect]
     Active Substance: AMINO ACIDS
     Indication: PARENTERAL NUTRITION
     Route: 042
  2. POTASSIUM CHLORIDE15% [Suspect]
     Active Substance: POTASSIUM CHLORIDE
     Indication: PARENTERAL NUTRITION
     Route: 042
  3. MAGNESIUM SULFATE 50% NACL [Suspect]
     Active Substance: MAGNESIUM SULFATE
     Indication: PARENTERAL NUTRITION
     Route: 042
  4. SODIUM GLYCEROPHOSPHATE 21.6% [Suspect]
     Active Substance: SODIUM GLYCEROPHOSPHATE
     Indication: PARENTERAL NUTRITION
     Route: 042
  5. CALCIUM GLUCONATE 10% [Suspect]
     Active Substance: CALCIUM GLUCONATE
     Indication: PARENTERAL NUTRITION
     Route: 042
  6. HEPARIN SODIUM. [Suspect]
     Active Substance: HEPARIN SODIUM
     Indication: PRODUCT USED FOR UNKNOWN INDICATION
     Route: 042
  7. DEXTROSE 50% USP [Suspect]
     Active Substance: DEXTROSE
     Indication: PARENTERAL NUTRITION
     Route: 042
  8. CLINOLEIC  20% [Suspect]
     Active Substance: OLIVE OIL\SOYBEAN OIL
     Indication: PARENTERAL NUTRITION
     Route: 042
  9. SODIUM CHLORIDE 23.4% INJ [Suspect]
     Active Substance: SODIUM CHLORIDE
     Indication: PARENTERAL NUTRITION
     Route: 042
  10. CERNEVIT [Suspect]
     Active Substance: VITAMINS
     Indication: PARENTERAL NUTRITION
     Route: 042
  11. STERILE WATER [Suspect]
     Active Substance: WATER
     Indication: PARENTERAL NUTRITION
     Route: 042
  12. NACL 0.9% INTRAVENOUS SOLUTION BP [Suspect]
     Active Substance: SODIUM CHLORIDE
     Indication: PRODUCT USED FOR UNKNOWN INDICATION
     Route: 042
  13. ADDAMEL N [Suspect]
     Active Substance: CHROMIC CHLORIDE\CUPROUS CHLORIDE\FERRIC CHLORIDE\MANGANESE CHLORIDE\POTASSIUM IODIDE\SODIUM FLUORIDE\SODIUM MOLYBDATE DIHYDRATE\SODIUM SELENITE\ZINC CHLORIDE
     Indication: PARENTERAL NUTRITION
     Route: 042

REACTIONS (4)
  - Culture urine positive [None]
  - Chills [Not Recovered/Not Resolved]
  - Pseudomonas test positive [None]
  - Device related infection [Unknown]

NARRATIVE: CASE EVENT DATE: 201506
